FAERS Safety Report 6730238 (Version 13)
Quarter: 2014Q3

REPORT INFORMATION
  Report Type: Spontaneous
  Country: US (occurrence: US)
  Receive Date: 20080819
  Receipt Date: 20140702
  Transmission Date: 20150326
  Serious: Yes (Other)
  Sender: FDA-Public Use
  Company Number: PHEH2008US07079

PATIENT
  Sex: Female
  Weight: 94.33 kg

DRUGS (18)
  1. ALTACE [Concomitant]
     Active Substance: RAMIPRIL
  2. AREDIA [Suspect]
     Active Substance: PAMIDRONATE DISODIUM
     Indication: OSTEOPOROSIS
  3. ATORVASTATIN [Concomitant]
     Active Substance: ATORVASTATIN
  4. DONNATAL [Concomitant]
     Active Substance: ATROPINE SULFATE\HYOSCYAMINE SULFATE\PHENOBARBITAL\SCOPOLAMINE HYDROBROMIDE
  5. NORVASC [Concomitant]
     Active Substance: AMLODIPINE BESYLATE
  6. METFORMIN [Concomitant]
     Active Substance: METFORMIN HYDROCHLORIDE
  7. CELEXA [Concomitant]
     Active Substance: CITALOPRAM HYDROBROMIDE
  8. HYDROCHLOROTHIAZIDE. [Concomitant]
     Active Substance: HYDROCHLOROTHIAZIDE
  9. AREDIA [Suspect]
     Active Substance: PAMIDRONATE DISODIUM
     Indication: BONE LOSS
     Dosage: 90 MG, QMO
     Route: 042
     Dates: start: 20020201, end: 20030305
  10. ZOMETA [Suspect]
     Active Substance: ZOLEDRONIC ACID
     Dosage: 4 MG, QMO
     Route: 042
     Dates: start: 20030305, end: 200402
  11. ARMOUR THYROID [Concomitant]
     Active Substance: THYROID, PORCINE\THYROID, UNSPECIFIED
  12. ZETIA [Concomitant]
     Active Substance: EZETIMIBE
  13. SYNTHROID [Concomitant]
     Active Substance: LEVOTHYROXINE SODIUM
  14. LEXAPRO [Concomitant]
     Active Substance: ESCITALOPRAM OXALATE
  15. AREDIA [Suspect]
     Active Substance: PAMIDRONATE DISODIUM
     Indication: BREAST CANCER
  16. WELLBUTRIN                         /00700502/ [Concomitant]
  17. FLOMAX [Concomitant]
     Active Substance: TAMSULOSIN HYDROCHLORIDE
  18. FLEXERIL [Concomitant]
     Active Substance: CYCLOBENZAPRINE HYDROCHLORIDE

REACTIONS (108)
  - Jaw disorder [Unknown]
  - Gastroenteritis viral [Unknown]
  - Exposed bone in jaw [Unknown]
  - Sensory loss [Unknown]
  - Jaw fracture [Unknown]
  - Hip deformity [Unknown]
  - Constipation [Unknown]
  - Pulmonary congestion [Unknown]
  - Back pain [Unknown]
  - Cardiac failure [Unknown]
  - Disability [Unknown]
  - Diarrhoea [Unknown]
  - Calculus ureteric [Unknown]
  - Hypoglycaemia [Unknown]
  - Onychomycosis [Unknown]
  - Impaired healing [Unknown]
  - Colon adenoma [Unknown]
  - Abdominal pain [Unknown]
  - Chronic leukaemia [Unknown]
  - Vulvovaginal dryness [Unknown]
  - Pain in jaw [Unknown]
  - Breast cancer metastatic [Unknown]
  - Major depression [Unknown]
  - Spinal cord compression [Unknown]
  - Renal failure chronic [Unknown]
  - Renal failure acute [Unknown]
  - Bone swelling [Unknown]
  - Breast disorder [Unknown]
  - Ovarian failure [Unknown]
  - Arthritis [Unknown]
  - Wound dehiscence [Unknown]
  - Abdominal discomfort [Unknown]
  - Visual impairment [Unknown]
  - Trichiasis [Unknown]
  - Chills [Unknown]
  - Anxiety [Unknown]
  - Diabetes mellitus [Unknown]
  - Leukopenia [Unknown]
  - Hepatic steatosis [Unknown]
  - Dyspnoea exertional [Unknown]
  - Basedow^s disease [Unknown]
  - Sinus disorder [Unknown]
  - Gastrooesophageal reflux disease [Unknown]
  - Vitamin D deficiency [Unknown]
  - Pericardial effusion [Unknown]
  - Hypoaesthesia [Unknown]
  - Open angle glaucoma [Unknown]
  - Dry eye [Unknown]
  - Oral candidiasis [Unknown]
  - Hypertension [Unknown]
  - Intervertebral disc protrusion [Unknown]
  - Anaemia [Unknown]
  - Metabolic syndrome [Unknown]
  - Heart rate increased [Unknown]
  - Epicondylitis [Unknown]
  - Cervical spinal stenosis [Unknown]
  - Primary sequestrum [Unknown]
  - Pleural fibrosis [Unknown]
  - Cataract [Unknown]
  - Hypertensive crisis [Unknown]
  - Hydronephrosis [Recovered/Resolved]
  - Post procedural complication [Unknown]
  - Swelling face [Unknown]
  - Bone disorder [Unknown]
  - Type 2 diabetes mellitus [Unknown]
  - Road traffic accident [Unknown]
  - Hepatic lesion [Unknown]
  - Nephrolithiasis [Unknown]
  - Dizziness [Unknown]
  - Vertebral osteophyte [Unknown]
  - Lymphadenopathy [Unknown]
  - Mental status changes [Unknown]
  - Phlebolith [Unknown]
  - Osteopenia [Unknown]
  - Large intestine polyp [Unknown]
  - Gingivitis [Unknown]
  - Dyspnoea [Unknown]
  - Second primary malignancy [Unknown]
  - Paraesthesia [Unknown]
  - Osteomyelitis [Unknown]
  - Cholelithiasis [Unknown]
  - Hypokalaemia [Unknown]
  - Intervertebral disc degeneration [Unknown]
  - Vertebral foraminal stenosis [Unknown]
  - Urinary tract infection [Unknown]
  - Neck pain [Unknown]
  - Spinal osteoarthritis [Unknown]
  - Lung infiltration [Unknown]
  - Pulmonary oedema [Unknown]
  - Osteonecrosis of jaw [Unknown]
  - Pain [Unknown]
  - Vaginal infection [Unknown]
  - Hyperlipidaemia [Unknown]
  - Obesity [Unknown]
  - Asthenia [Unknown]
  - Dental caries [Unknown]
  - Periodontal disease [Unknown]
  - Oral disorder [Unknown]
  - Arthralgia [Unknown]
  - Osteoarthritis [Unknown]
  - Seroma [Unknown]
  - Bladder disorder [Unknown]
  - Hydroureter [Recovering/Resolving]
  - Loss of libido [Unknown]
  - Procedural pain [Unknown]
  - Actinomycosis [Unknown]
  - Hypercholesterolaemia [Unknown]
  - Dysphagia [Unknown]
